FAERS Safety Report 6632215-6 (Version None)
Quarter: 2010Q1

REPORT INFORMATION
  Report Type: 
  Country: None (occurrence: None)
  Receive Date: 20100312
  Receipt Date: 20100303
  Transmission Date: 20100710
  Serious: Yes (Death)
  Sender: FDA-Public Use
  Company Number: GXKR2010FI02584

PATIENT
  Age: 66 Year
  Sex: Female

DRUGS (4)
  1. ACETYLSALICYLIC ACID SRT [Suspect]
     Indication: CORONARY ARTERIAL STENT INSERTION
     Dosage: 100 MG/DAY
     Route: 065
  2. CLOPIDOGREL [Suspect]
     Indication: CORONARY ARTERIAL STENT INSERTION
     Dosage: 75 MG, UNK
     Route: 065
  3. ENOXAPARIN (NGX) [Suspect]
     Indication: PROPHYLAXIS
     Dosage: 20 MG, BID
     Route: 065
  4. DALTEPARIN [Suspect]
     Indication: THROMBOSIS PROPHYLAXIS
     Dosage: 2500 IU, QD
     Route: 065

REACTIONS (10)
  - CEREBELLAR HAEMATOMA [None]
  - CONVULSION [None]
  - HAEMATOMA EVACUATION [None]
  - HYDROCEPHALUS [None]
  - LOSS OF CONSCIOUSNESS [None]
  - PARALYSIS [None]
  - SOMNOLENCE [None]
  - TRACHEOSTOMY [None]
  - VENTRICULAR CISTERNOSTOMY [None]
  - VENTRICULAR DRAINAGE [None]
